FAERS Safety Report 25484476 (Version 1)
Quarter: 2025Q2

REPORT INFORMATION
  Report Type: Spontaneous
  Country: US (occurrence: None)
  Receive Date: 20250626
  Receipt Date: 20250626
  Transmission Date: 20250716
  Serious: Yes (Hospitalization)
  Sender: FDA-CTU
  Company Number: None

PATIENT
  Sex: Male

DRUGS (3)
  1. BENEFIX [Suspect]
     Active Substance: COAGULATION FACTOR IX RECOMBINANT HUMAN\ISOPROPYL ALCOHOL
     Indication: Factor IX deficiency
     Route: 040
     Dates: start: 20231227
  2. VYNDAMAX [Concomitant]
     Active Substance: TAFAMIDIS
  3. BENEFIX INJ [Concomitant]

REACTIONS (1)
  - Genital haemorrhage [None]
